FAERS Safety Report 24176455 (Version 1)
Quarter: 2024Q3

REPORT INFORMATION
  Report Type: Spontaneous
  Country: BR (occurrence: BR)
  Receive Date: 20240806
  Receipt Date: 20240806
  Transmission Date: 20241017
  Serious: Yes (Other)
  Sender: CELLTRION
  Company Number: BR-CELLTRION INC.-2024BR008349

PATIENT

DRUGS (4)
  1. INFLIXIMAB [Suspect]
     Active Substance: INFLIXIMAB
     Indication: Crohn^s disease
     Dosage: 400 MG, 4 AMPOULES EVERY 8 WEEKS
     Route: 042
     Dates: start: 20230228
  2. INFLIXIMAB [Suspect]
     Active Substance: INFLIXIMAB
     Dosage: 400 MG, 4 AMPOULES EVERY 8 WEEKS
     Route: 042
     Dates: start: 20240604
  3. AZATHIOPRINE [Concomitant]
     Active Substance: AZATHIOPRINE
     Indication: Crohn^s disease
     Dosage: 2 PILLS A DAY
     Route: 048
     Dates: start: 2022
  4. MESALAMINE [Concomitant]
     Active Substance: MESALAMINE
     Indication: Crohn^s disease
     Dosage: 500 MILLIGRAMS 3 PILLS A DAY
     Route: 048
     Dates: start: 2021

REACTIONS (10)
  - Crohn^s disease [Recovering/Resolving]
  - Haematochezia [Recovering/Resolving]
  - Pruritus [Recovered/Resolved]
  - Dengue fever [Recovered/Resolved]
  - Erythema [Recovered/Resolved]
  - Infusion related hypersensitivity reaction [Recovering/Resolving]
  - Intentional dose omission [Recovered/Resolved]
  - Underdose [Unknown]
  - Drug ineffective [Recovering/Resolving]
  - Overdose [Unknown]

NARRATIVE: CASE EVENT DATE: 20240323
